FAERS Safety Report 8877798 (Version 1)
Quarter: 2012Q4

REPORT INFORMATION
  Report Type: Spontaneous
  Country: US (occurrence: None)
  Receive Date: 20121026
  Receipt Date: 20121026
  Transmission Date: 20130627
  Serious: Yes (Death, Hospitalization, Other)
  Sender: FDA-Public Use
  Company Number: AUR-APL-2012-04546

PATIENT
  Age: 38 Year
  Sex: Female

DRUGS (9)
  1. SIMVASTATIN (SIMVASTATIN) [Suspect]
  2. ZAPONEX [Suspect]
     Route: 048
     Dates: start: 20081209
  3. APIDRA SOLOSTAR (INSULIN GLULISINE) [Concomitant]
  4. FUROATE AND CHLORPHENAMINE (CHLORPHENAMINE) [Concomitant]
  5. DEPO-PROVERA (MEDROXYPROGESTERONE ACETATE) [Concomitant]
  6. DIAZEPAM (DIAZEPAM) [Concomitant]
  7. DIHYDROCODEINE (DIHYDROCODEINE) [Concomitant]
  8. FUROSEMIDE (FUROSEMIDE) [Concomitant]
  9. LANTUS SOLOSTAR (INSULIN GLARGINE) [Concomitant]

REACTIONS (18)
  - Joint swelling [None]
  - Arthralgia [None]
  - Dyspnoea [None]
  - Inflammatory marker increased [None]
  - Iron deficiency anaemia [None]
  - Polyarthritis [None]
  - General physical health deterioration [None]
  - Platelet count increased [None]
  - Malaise [None]
  - Neoplasm malignant [None]
  - Endocarditis [None]
  - Infection [None]
  - Lymphoma [None]
  - Neutrophil count increased [None]
  - Mass [None]
  - Condition aggravated [None]
  - Emotional distress [None]
  - Electrocardiogram QT prolonged [None]
